FAERS Safety Report 6631360-9 (Version None)
Quarter: 2010Q1

REPORT INFORMATION
  Report Type: 
  Country: None (occurrence: None)
  Receive Date: 20100312
  Receipt Date: 20100302
  Transmission Date: 20100710
  Serious: Yes (Hospitalization)
  Sender: FDA-Public Use
  Company Number: CA-JNJFOC-20090406902

PATIENT
  Sex: Male
  Weight: 88 kg

DRUGS (18)
  1. REMICADE [Suspect]
     Indication: RHEUMATOID ARTHRITIS
     Route: 042
  2. REMICADE [Suspect]
     Route: 042
  3. APO-PREDNISONE [Concomitant]
  4. NITRAZEPAM [Concomitant]
  5. NOVO-SEMIDE [Concomitant]
     Indication: BLOOD PRESSURE
  6. COUMADIN [Concomitant]
  7. BISOPROLOL FUMARATE [Concomitant]
     Indication: BLOOD PRESSURE
  8. PREVACID [Concomitant]
  9. METFORMIN [Concomitant]
  10. GLYBURIDE [Concomitant]
     Indication: DIABETES MELLITUS
  11. LIPITOR [Concomitant]
     Indication: BLOOD CHOLESTEROL
  12. ASPIRIN [Concomitant]
     Indication: CARDIOVASCULAR DISORDER
  13. RAMIPRIL [Concomitant]
     Indication: BLOOD PRESSURE
  14. PROPAFENONE HCL [Concomitant]
     Indication: BLOOD PRESSURE
  15. NOVOLIN N [Concomitant]
     Dosage: 30 UNITS
     Route: 058
  16. NITRO SPRAY [Concomitant]
  17. ACETAMINOPHEN [Concomitant]
     Indication: PYREXIA
  18. ACETAMINOPHEN [Concomitant]
     Indication: PAIN

REACTIONS (1)
  - ARRHYTHMIA [None]
